FAERS Safety Report 8307389 (Version 4)
Quarter: 2017Q1

REPORT INFORMATION
  Report Type: Report from Study
  Country: DE (occurrence: DE)
  Receive Date: 20111222
  Receipt Date: 20170306
  Transmission Date: 20170429
  Serious: Yes (Death, Hospitalization, Other)
  Sender: FDA-Public Use
  Company Number: DE-ROCHE-1023500

PATIENT
  Age: 48 Year
  Sex: Male
  Weight: 85 kg

DRUGS (4)
  1. TRASTUZUMAB [Suspect]
     Active Substance: TRASTUZUMAB
     Indication: HER-2 POSITIVE GASTRIC CANCER
     Dosage: LAST DOSE PRIOR TO SAE NEUTROPENIA 13/APR/2011?LAST DOSE PRIOR TO SAE HYPOKAEAEMIA 05/MAR/2011?LAST
     Route: 042
     Dates: start: 20110302, end: 20110826
  2. DOCETAXEL. [Concomitant]
     Active Substance: DOCETAXEL
     Indication: HER-2 POSITIVE GASTRIC CANCER
     Route: 042
     Dates: start: 20110209, end: 20110413
  3. CISPLATIN. [Concomitant]
     Active Substance: CISPLATIN
     Indication: HER-2 POSITIVE GASTRIC CANCER
     Route: 042
     Dates: start: 20110209, end: 20110413
  4. 5-FU [Concomitant]
     Active Substance: FLUOROURACIL
     Indication: HER-2 POSITIVE GASTRIC CANCER
     Route: 042
     Dates: start: 20110209, end: 20110413

REACTIONS (7)
  - Malignant neoplasm progression [Fatal]
  - Hypokalaemia [Recovered/Resolved]
  - Agranulocytosis [Recovered/Resolved]
  - Neuropathy peripheral [Not Recovered/Not Resolved]
  - Skin bacterial infection [Recovered/Resolved]
  - Upper gastrointestinal haemorrhage [Recovered/Resolved]
  - Neutropenia [Recovered/Resolved]

NARRATIVE: CASE EVENT DATE: 20110409
